FAERS Safety Report 13251431 (Version 1)
Quarter: 2017Q1

REPORT INFORMATION
  Report Type: Spontaneous
  Country: US (occurrence: US)
  Receive Date: 20170220
  Receipt Date: 20170220
  Transmission Date: 20170428
  Serious: No
  Sender: FDA-Public Use
  Company Number: US-BAYER-2017-032996

PATIENT
  Age: 76 Year
  Sex: Female
  Weight: 48 kg

DRUGS (6)
  1. CALCIUM ACETATE. [Concomitant]
     Active Substance: CALCIUM ACETATE
     Route: 065
  2. CLARITIN [Suspect]
     Active Substance: LORATADINE
     Indication: NASOPHARYNGITIS
  3. COD-LIVER OIL [Concomitant]
     Active Substance: FISH OIL
     Route: 065
  4. ECOTRIN [Concomitant]
     Active Substance: ASPIRIN
     Route: 065
  5. CLARITIN [Suspect]
     Active Substance: LORATADINE
     Indication: HYPERSENSITIVITY
     Route: 061
     Dates: start: 20170206, end: 20170215
  6. LISINOPRIL. [Concomitant]
     Active Substance: LISINOPRIL
     Route: 065

REACTIONS (2)
  - Therapeutic response unexpected [Unknown]
  - Drug ineffective [Unknown]

NARRATIVE: CASE EVENT DATE: 201702
